FAERS Safety Report 7554835-7 (Version None)
Quarter: 2011Q2

REPORT INFORMATION
  Report Type: 
  Country: None (occurrence: None)
  Receive Date: 20110617
  Receipt Date: 20110609
  Transmission Date: 20111010
  Serious: Yes (Hospitalization)
  Sender: FDA-Public Use
  Company Number: US-MERCK-1106USA01345

PATIENT
  Age: 57 Year
  Sex: Female

DRUGS (4)
  1. ZESTRIL [Suspect]
     Route: 065
  2. PRINIVIL [Suspect]
     Route: 048
  3. PRINIVIL [Suspect]
     Indication: HYPERTENSION
     Route: 048
     Dates: start: 20050101
  4. GLUCOPHAGE [Concomitant]
     Indication: DIABETES MELLITUS
     Route: 065

REACTIONS (1)
  - GASTROINTESTINAL OEDEMA [None]
